FAERS Safety Report 5903317-4 (Version None)
Quarter: 2008Q3

REPORT INFORMATION
  Report Type: 
  Country: None (occurrence: None)
  Receive Date: 20080930
  Receipt Date: 20080925
  Transmission Date: 20090109
  Serious: Yes (Death)
  Sender: FDA-Public Use
  Company Number: B0539152A

PATIENT
  Sex: Female

DRUGS (3)
  1. LAPATINIB [Suspect]
     Route: 048
  2. EPIRUBICIN [Suspect]
     Route: 065
  3. VINORELBINE [Suspect]
     Route: 065

REACTIONS (11)
  - AMMONIA INCREASED [None]
  - COUGH [None]
  - DECREASED APPETITE [None]
  - DEPRESSED LEVEL OF CONSCIOUSNESS [None]
  - DIARRHOEA [None]
  - DYSPNOEA [None]
  - GENERAL PHYSICAL HEALTH DETERIORATION [None]
  - NAUSEA [None]
  - PSEUDOMONAS INFECTION [None]
  - PYREXIA [None]
  - VOMITING [None]
